FAERS Safety Report 16093283 (Version 3)
Quarter: 2019Q2

REPORT INFORMATION
  Report Type: Report from Study
  Country: US (occurrence: US)
  Receive Date: 20190320
  Receipt Date: 20190513
  Transmission Date: 20190711
  Serious: Yes (Other)
  Sender: FDA-Public Use
  Company Number: US-SUN PHARMACEUTICAL INDUSTRIES LTD-2019R1-201880

PATIENT
  Age: 21 Year
  Sex: Female

DRUGS (1)
  1. ABSORICA [Suspect]
     Active Substance: ISOTRETINOIN
     Indication: PRODUCT USED FOR UNKNOWN INDICATION
     Dosage: 40 MILLIGRAM, QD
     Route: 065
     Dates: start: 20180226, end: 20180404

REACTIONS (5)
  - Abortion induced [Unknown]
  - Self-medication [Unknown]
  - Off label use [Unknown]
  - Exposure during pregnancy [Unknown]
  - Product dispensing error [Unknown]

NARRATIVE: CASE EVENT DATE: 20180226
